FAERS Safety Report 24106604 (Version 1)
Quarter: 2024Q3

REPORT INFORMATION
  Report Type: Spontaneous
  Country: US (occurrence: US)
  Receive Date: 20240717
  Receipt Date: 20240717
  Transmission Date: 20241016
  Serious: No
  Sender: AVERITAS
  Company Number: US-GRUNENTHAL-2023-112327

PATIENT
  Age: 76 Year
  Sex: Female

DRUGS (4)
  1. CAPSAICIN [Suspect]
     Active Substance: CAPSAICIN
     Indication: Diabetic neuropathy
     Dosage: 4 DOSAGE FORM, ONCE
     Route: 003
  2. CAPSAICIN [Suspect]
     Active Substance: CAPSAICIN
     Indication: Raynaud^s phenomenon
  3. TRAMADOL HYDROCHLORIDE [Concomitant]
     Active Substance: TRAMADOL HYDROCHLORIDE
     Indication: Diabetic neuropathy
     Dosage: UNK
     Route: 065
  4. GABAPENTIN [Concomitant]
     Active Substance: GABAPENTIN
     Indication: Diabetic neuropathy
     Dosage: UNK
     Route: 065

REACTIONS (2)
  - Therapeutic response unexpected [Unknown]
  - Wrong technique in product usage process [Unknown]
